FAERS Safety Report 8456747-3 (Version None)
Quarter: 2012Q2

REPORT INFORMATION
  Report Type: 
  Country: None (occurrence: None)
  Receive Date: 20120621
  Receipt Date: 20120608
  Transmission Date: 20120825
  Serious: No
  Sender: FDA-Public Use
  Company Number: US-ASTRAZENECA-2012SE39343

PATIENT
  Age: 64 Year
  Sex: Female
  Weight: 86.2 kg

DRUGS (5)
  1. ONGLYZA [Suspect]
     Indication: DIABETES MELLITUS
     Route: 048
  2. METFORMIN HCL [Concomitant]
     Indication: DIABETES MELLITUS
  3. RESCUE INHALER [Concomitant]
  4. SYMBICORT [Suspect]
     Indication: CHRONIC OBSTRUCTIVE PULMONARY DISEASE
     Dosage: 160/4.5MCG, TWO PUFFS BID
     Route: 055
     Dates: start: 20090101
  5. LISINOPRIL [Concomitant]
     Indication: CARDIAC DISORDER

REACTIONS (1)
  - DYSPNOEA [None]
